FAERS Safety Report 8693488 (Version 4)
Quarter: 2013Q2

REPORT INFORMATION
  Report Type: Report from Study
  Country: BE (occurrence: BE)
  Receive Date: 20120730
  Receipt Date: 20130515
  Transmission Date: 20140414
  Serious: Yes (Hospitalization, Other)
  Sender: FDA-Public Use
  Company Number: BE-BAYER-2012-051384

PATIENT
  Age: 69 Year
  Sex: Male
  Weight: 100 kg

DRUGS (11)
  1. RIVAROXABAN [Suspect]
     Indication: PERCUTANEOUS CORONARY INTERVENTION
     Dosage: UNK
     Route: 048
     Dates: start: 20120507, end: 20120507
  2. ACETYLSALICYLIC ACID({=100 MG) [Interacting]
     Indication: CORONARY ARTERY DISEASE
     Dosage: 80 MG, QD
     Route: 048
     Dates: start: 20120420
  3. CLOPIDOGREL [Interacting]
     Dosage: 75 MG, QD
     Route: 048
     Dates: start: 20120421
  4. MOLSIDOMINE [Concomitant]
     Indication: MYOCARDIAL ISCHAEMIA
     Dosage: 16 MG
     Route: 048
     Dates: start: 20120421
  5. HYDROCHLOROTHIAZIDE [Concomitant]
     Dosage: 12.5 MG
     Route: 048
  6. SALMETEROL [Concomitant]
     Dosage: 100 ?G
     Route: 055
  7. FLUTICASONE PROPIONATE [Concomitant]
     Dosage: 1000 ?G
     Route: 055
  8. LORETAM [Concomitant]
  9. SIMVASTATINE [Concomitant]
     Dosage: 40 MG, QD
  10. SERETIDE DISKUS [Concomitant]
     Dosage: UNK
  11. EMCONCOR [Concomitant]
     Dosage: 10 MG, QD

REACTIONS (2)
  - Lower gastrointestinal haemorrhage [Recovered/Resolved]
  - Intestinal mass [Not Recovered/Not Resolved]
